FAERS Safety Report 14342149 (Version 1)
Quarter: 2018Q1

REPORT INFORMATION
  Report Type: Spontaneous
  Country: US (occurrence: US)
  Receive Date: 20180102
  Receipt Date: 20180102
  Transmission Date: 20180509
  Serious: No
  Sender: FDA-Public Use
  Company Number: US-TEVA-743202ACC

PATIENT
  Age: 60 Year
  Sex: Female

DRUGS (1)
  1. MINOXIDIL TSOL MN [Suspect]
     Active Substance: MINOXIDIL
     Indication: ALOPECIA
     Dates: start: 201701, end: 201701

REACTIONS (1)
  - Pruritus [Recovered/Resolved]

NARRATIVE: CASE EVENT DATE: 201701
